FAERS Safety Report 10712995 (Version 1)
Quarter: 2015Q1

REPORT INFORMATION
  Report Type: Spontaneous
  Country: US (occurrence: None)
  Receive Date: 20150114
  Receipt Date: 20150114
  Transmission Date: 20150721
  Serious: No
  Sender: FDA-Public Use
  Company Number: None

PATIENT
  Age: 51 Year
  Sex: Male

DRUGS (2)
  1. ETOPOSIDE. [Suspect]
     Active Substance: ETOPOSIDE
  2. CISPLATIN. [Suspect]
     Active Substance: CISPLATIN

REACTIONS (2)
  - Chest discomfort [None]
  - Nausea [None]

NARRATIVE: CASE EVENT DATE: 20150108
